FAERS Safety Report 4834885-1 (Version None)
Quarter: 2005Q4

REPORT INFORMATION
  Report Type: 
  Country: None (occurrence: None)
  Receive Date: 20051115
  Receipt Date: 20051103
  Transmission Date: 20060501
  Serious: Yes (Hospitalization)
  Sender: FDA-Public Use
  Company Number: SP00521

PATIENT
  Age: 62 Year
  Sex: Female
  Weight: 72.5755 kg

DRUGS (6)
  1. XIFAXAN [Suspect]
     Indication: DIARRHOEA INFECTIOUS
     Dosage: 200MG/TID, ORAL
     Route: 048
     Dates: start: 20051021, end: 20051023
  2. VASOTEC [Concomitant]
  3. TOPROL-XL [Concomitant]
  4. PROZAC [Concomitant]
  5. COUMADIN [Concomitant]
  6. LIPITOR [Concomitant]

REACTIONS (5)
  - COLITIS COLLAGENOUS [None]
  - EOSINOPHILIA [None]
  - HYPOTENSION [None]
  - LARGE INTESTINAL ULCER [None]
  - SHOCK [None]
